FAERS Safety Report 5966471-4 (Version None)
Quarter: 2008Q4

REPORT INFORMATION
  Report Type: 
  Country: None (occurrence: None)
  Receive Date: 20081125
  Receipt Date: 20081029
  Transmission Date: 20090506
  Serious: Yes (Hospitalization)
  Sender: FDA-Public Use
  Company Number: US-ROCHE-594747

PATIENT
  Sex: Male

DRUGS (2)
  1. PEG-INTERFERON A-2A (RO 25-8310) [Suspect]
     Indication: HEPATITIS C
     Dosage: INDICATION REPORTED AS: HCV GENOTYPE 1 AND 4, FORM: PRE FILLED SYRINGE, PATIENT IN WEEK 2 OF THERAPY
     Route: 065
     Dates: start: 20081022
  2. RIBAVIRIN [Suspect]
     Indication: HEPATITIS C
     Dosage: INDICATION REPORTED AS : HCV GENOTYPE 1 AND 4, PATIENT IN WEEK 2 OF THERAPY
     Route: 065
     Dates: start: 20081022

REACTIONS (4)
  - JOINT LOCK [None]
  - NERVE COMPRESSION [None]
  - SINUSITIS [None]
  - URINARY TRACT INFECTION [None]
